FAERS Safety Report 10973976 (Version 2)
Quarter: 2015Q3

REPORT INFORMATION
  Report Type: Report from Study
  Country: US (occurrence: US)
  Receive Date: 20150401
  Receipt Date: 20150807
  Transmission Date: 20151125
  Serious: Yes (Hospitalization, Other)
  Sender: FDA-Public Use
  Company Number: US-GILEAD-2015-0146017

PATIENT
  Age: 62 Year
  Sex: Female

DRUGS (16)
  1. COUMADIN [Concomitant]
     Active Substance: WARFARIN SODIUM
  2. GLYBURIDE. [Concomitant]
     Active Substance: GLYBURIDE
  3. OXYCODONE [Concomitant]
     Active Substance: OXYCODONE
  4. AMBRISENTAN [Suspect]
     Active Substance: AMBRISENTAN
     Indication: CONNECTIVE TISSUE DISORDER
  5. LANTUS [Concomitant]
     Active Substance: INSULIN GLARGINE
  6. AMBRISENTAN [Suspect]
     Active Substance: AMBRISENTAN
     Indication: PULMONARY HYPERTENSION
     Dosage: 10 MG, QD
     Route: 065
     Dates: start: 20071112
  7. SPIRONOLACTONE. [Concomitant]
     Active Substance: SPIRONOLACTONE
  8. TORSEMIDE. [Concomitant]
     Active Substance: TORSEMIDE
  9. HYDROXYCHLOROQUINE [Concomitant]
     Active Substance: HYDROXYCHLOROQUINE
  10. SYNTHROID [Concomitant]
     Active Substance: LEVOTHYROXINE SODIUM
  11. REMODULIN [Concomitant]
     Active Substance: TREPROSTINIL
  12. GABAPENTIN. [Concomitant]
     Active Substance: GABAPENTIN
  13. VITAMIN D [Concomitant]
     Active Substance: CHOLECALCIFEROL
  14. POTASSIUM [Concomitant]
     Active Substance: POTASSIUM
  15. PROTONIX [Concomitant]
     Active Substance: PANTOPRAZOLE SODIUM
  16. EFFEXOR [Concomitant]
     Active Substance: VENLAFAXINE HYDROCHLORIDE

REACTIONS (1)
  - Atrial flutter [Recovered/Resolved]
